FAERS Safety Report 25389959 (Version 2)
Quarter: 2025Q2

REPORT INFORMATION
  Report Type: Report from Study
  Country: SG (occurrence: SG)
  Receive Date: 20250603
  Receipt Date: 20250613
  Transmission Date: 20250717
  Serious: Yes (Other)
  Sender: TEVA
  Company Number: SG-TEVA-VS-3337001

PATIENT

DRUGS (1)
  1. PREDNISOLONE [Suspect]
     Active Substance: PREDNISOLONE
     Indication: Immune system disorder
     Route: 065

REACTIONS (3)
  - Pathological fracture [Unknown]
  - Patella fracture [Unknown]
  - Osteoporosis [Unknown]
